FAERS Safety Report 19497270 (Version 1)
Quarter: 2021Q3

REPORT INFORMATION
  Report Type: Report from Study
  Country: CR (occurrence: CR)
  Receive Date: 20210706
  Receipt Date: 20210706
  Transmission Date: 20211014
  Serious: Yes (Hospitalization, Other)
  Sender: FDA-Public Use
  Company Number: CR-ASTRAZENECA-2021A589888

PATIENT
  Age: 30407 Day
  Sex: Female

DRUGS (1)
  1. TAGRISSO [Suspect]
     Active Substance: OSIMERTINIB
     Indication: LUNG NEOPLASM MALIGNANT
     Route: 048
     Dates: start: 202106

REACTIONS (2)
  - Pulmonary embolism [Recovering/Resolving]
  - Tachycardia [Unknown]

NARRATIVE: CASE EVENT DATE: 20210621
